FAERS Safety Report 10869538 (Version 1)
Quarter: 2015Q1

REPORT INFORMATION
  Report Type: Spontaneous
  Country: US (occurrence: US)
  Receive Date: 20150226
  Receipt Date: 20150226
  Transmission Date: 20150721
  Serious: Yes (Hospitalization, Other)
  Sender: FDA-Public Use
  Company Number: US-GLAXOSMITHKLINE-US2015024918

PATIENT
  Age: 54 Year
  Sex: Female

DRUGS (8)
  1. PREDNISONE. [Concomitant]
     Active Substance: PREDNISONE
  2. KEPPRA [Suspect]
     Active Substance: LEVETIRACETAM
     Indication: PRODUCT USED FOR UNKNOWN INDICATION
     Dosage: UNK, U
     Route: 065
     Dates: end: 20140926
  3. ATENOLOL. [Concomitant]
     Active Substance: ATENOLOL
  4. LAMICTAL [Suspect]
     Active Substance: LAMOTRIGINE
     Dosage: 200MG AM AND 300MG PM, VA
     Dates: start: 201403
  5. MIRTAZAPINE. [Suspect]
     Active Substance: MIRTAZAPINE
     Indication: PRODUCT USED FOR UNKNOWN INDICATION
     Dosage: UNK, U
     Route: 065
  6. LAMICTAL [Suspect]
     Active Substance: LAMOTRIGINE
     Indication: EPILEPSY
     Dosage: UNK
     Dates: start: 201304
  7. TEGRETOL [Suspect]
     Active Substance: CARBAMAZEPINE
     Indication: PRODUCT USED FOR UNKNOWN INDICATION
     Dosage: UNK, U
     Route: 065
     Dates: end: 201403
  8. CITALOPRAM [Suspect]
     Active Substance: CITALOPRAM HYDROBROMIDE
     Indication: PRODUCT USED FOR UNKNOWN INDICATION
     Dosage: UNK UNK, U
     Route: 065

REACTIONS (16)
  - Hypertension [Recovering/Resolving]
  - Aggression [Not Recovered/Not Resolved]
  - Panic attack [Unknown]
  - Urinary tract infection [Recovered/Resolved]
  - Sluggishness [Unknown]
  - Hallucination, auditory [Unknown]
  - Nightmare [Recovering/Resolving]
  - Hostility [Not Recovered/Not Resolved]
  - Overdose [Recovering/Resolving]
  - Condition aggravated [Unknown]
  - Suicidal ideation [Unknown]
  - Abnormal behaviour [Unknown]
  - Hypoaesthesia [Recovered/Resolved]
  - Treatment noncompliance [Unknown]
  - Diarrhoea [Recovered/Resolved]
  - Trismus [Recovered/Resolved]

NARRATIVE: CASE EVENT DATE: 201403
